FAERS Safety Report 16403294 (Version 2)
Quarter: 2019Q3

REPORT INFORMATION
  Report Type: Other
  Country: ES (occurrence: ES)
  Receive Date: 20190607
  Receipt Date: 20190813
  Transmission Date: 20191004
  Serious: Yes (Hospitalization, Other)
  Sender: FDA-Public Use
  Company Number: ES-CELLTRION INC.-2019ES021743

PATIENT

DRUGS (12)
  1. RITUXIMAB (UNKNOWN) [Suspect]
     Active Substance: RITUXIMAB
     Dosage: UNK
     Route: 065
     Dates: start: 20181203, end: 20181203
  2. VINCRISTINE [Concomitant]
     Active Substance: VINCRISTINE
  3. PREDNISOLONE. [Concomitant]
     Active Substance: PREDNISOLONE
  4. CYCLOPHOSPHAMIDE. [Concomitant]
     Active Substance: CYCLOPHOSPHAMIDE
  5. RITUXIMAB (UNKNOWN) [Suspect]
     Active Substance: RITUXIMAB
     Dosage: UNK
     Route: 065
     Dates: start: 20190311, end: 20190415
  6. RITUXIMAB (UNKNOWN) [Suspect]
     Active Substance: RITUXIMAB
     Dosage: UNK
     Route: 065
     Dates: start: 20190307
  7. GEMCITABINE. [Concomitant]
     Active Substance: GEMCITABINE
  8. DEXAMETHASONE. [Concomitant]
     Active Substance: DEXAMETHASONE
  9. DOXORUBICIN [Concomitant]
     Active Substance: DOXORUBICIN
  10. CISPLATIN. [Concomitant]
     Active Substance: CISPLATIN
  11. RITUXIMAB (UNKNOWN) [Suspect]
     Active Substance: RITUXIMAB
     Indication: DIFFUSE LARGE B-CELL LYMPHOMA
     Dosage: UNK
     Route: 065
     Dates: start: 20131104, end: 20140307
  12. RITUXIMAB (UNKNOWN) [Suspect]
     Active Substance: RITUXIMAB
     Dosage: UNK
     Route: 065
     Dates: start: 20180416, end: 20180918

REACTIONS (5)
  - Chronic hepatitis [Recovered/Resolved]
  - Breast cancer [Unknown]
  - Pneumonia [Unknown]
  - Haemoglobin [Unknown]
  - Lymphoma [Unknown]

NARRATIVE: CASE EVENT DATE: 201809
